FAERS Safety Report 7964756-3 (Version None)
Quarter: 2011Q4

REPORT INFORMATION
  Report Type: 
  Country: None (occurrence: None)
  Receive Date: 20111208
  Receipt Date: 20111206
  Transmission Date: 20120403
  Serious: Yes (Other)
  Sender: FDA-Public Use
  Company Number: JP-PFIZER INC-2011284783

PATIENT
  Age: 77 Year
  Sex: Female

DRUGS (4)
  1. UNIPHYL [Concomitant]
     Dosage: 200 MG DAILY
     Route: 048
  2. GABAPENTIN [Suspect]
     Indication: HYPOAESTHESIA
     Dosage: 800 MG/DAY
     Route: 048
     Dates: start: 20090101
  3. LIPITOR [Concomitant]
     Dosage: 10 MG DAILY
     Route: 048
  4. MICARDIS [Concomitant]
     Dosage: 40 MG DAILY
     Route: 048

REACTIONS (2)
  - NAIL PIGMENTATION [None]
  - CIRCULATORY COLLAPSE [None]
